FAERS Safety Report 15716653 (Version 3)
Quarter: 2020Q1

REPORT INFORMATION
  Report Type: Spontaneous
  Country: CN (occurrence: CN)
  Receive Date: 20181213
  Receipt Date: 20200122
  Transmission Date: 20200409
  Serious: Yes (Other)
  Sender: FDA-Public Use
  Company Number: CN-ROCHE-2227233

PATIENT
  Age: 60 Year
  Sex: Female

DRUGS (27)
  1. ZOLEDRONIC ACID [Concomitant]
     Active Substance: ZOLEDRONIC ACID
     Indication: HER-2 POSITIVE BREAST CANCER
     Route: 065
     Dates: start: 20180205
  2. ANASTROZOLE. [Concomitant]
     Active Substance: ANASTROZOLE
     Indication: HER-2 POSITIVE BREAST CANCER
     Route: 048
     Dates: start: 2016, end: 2016
  3. ARTEMISIA [Concomitant]
     Active Substance: HERBALS
  4. XELODA [Suspect]
     Active Substance: CAPECITABINE
     Dosage: FROM DAY 1 TO DAY 14 OF EACH 3 WEEKLY CYCLE
     Route: 048
     Dates: start: 201711
  5. ZOLEDRONIC ACID [Concomitant]
     Active Substance: ZOLEDRONIC ACID
     Route: 065
     Dates: start: 201712
  6. PACLITAXEL. [Concomitant]
     Active Substance: PACLITAXEL
     Route: 065
     Dates: start: 20160819, end: 20161008
  7. CARBOPLATIN. [Concomitant]
     Active Substance: CARBOPLATIN
     Indication: HER-2 POSITIVE BREAST CANCER
     Dosage: ON DAY 1, 8, 15
     Route: 065
     Dates: start: 20160422
  8. HERCEPTIN [Suspect]
     Active Substance: TRASTUZUMAB
     Route: 042
     Dates: start: 20160804
  9. HERCEPTIN [Suspect]
     Active Substance: TRASTUZUMAB
     Route: 042
     Dates: start: 201712
  10. ZOLEDRONIC ACID [Concomitant]
     Active Substance: ZOLEDRONIC ACID
     Route: 065
     Dates: start: 201602, end: 201604
  11. ANASTROZOLE. [Concomitant]
     Active Substance: ANASTROZOLE
     Route: 048
     Dates: start: 201712
  12. CARBOPLATIN. [Concomitant]
     Active Substance: CARBOPLATIN
     Route: 065
     Dates: start: 20160819, end: 20161008
  13. COLONY STIMULATING FACTORS [Concomitant]
     Active Substance: UNSPECIFIED INGREDIENT
     Indication: HER-2 POSITIVE BREAST CANCER
     Route: 065
     Dates: start: 2016, end: 2016
  14. HERCEPTIN [Suspect]
     Active Substance: TRASTUZUMAB
     Route: 042
     Dates: start: 20160812
  15. HERCEPTIN [Suspect]
     Active Substance: TRASTUZUMAB
     Route: 042
     Dates: start: 20160819, end: 20161008
  16. PACLITAXEL. [Concomitant]
     Active Substance: PACLITAXEL
     Indication: HER-2 POSITIVE BREAST CANCER
     Dosage: ON DAY 1, 8, 15
     Route: 065
     Dates: start: 20160422, end: 20160709
  17. HERCEPTIN [Suspect]
     Active Substance: TRASTUZUMAB
     Indication: HER-2 POSITIVE BREAST CANCER
     Dosage: LOADING DOSE 242MG (11ML) FOLLOWED BY MAINTAINING DOSE OF 121MG (5.5ML) WEEKLY
     Route: 042
     Dates: start: 20160422, end: 20160709
  18. HERCEPTIN [Suspect]
     Active Substance: TRASTUZUMAB
     Route: 042
     Dates: start: 20160715, end: 20180722
  19. ZOLEDRONIC ACID [Concomitant]
     Active Substance: ZOLEDRONIC ACID
     Route: 065
     Dates: start: 201610, end: 201711
  20. PACLITAXEL. [Concomitant]
     Active Substance: PACLITAXEL
     Route: 065
     Dates: start: 20160715, end: 20160722
  21. CARBOPLATIN. [Concomitant]
     Active Substance: CARBOPLATIN
     Route: 065
     Dates: start: 20160715, end: 20160722
  22. HERCEPTIN [Suspect]
     Active Substance: TRASTUZUMAB
     Dosage: ON DAY 1 OF EACH CYCLE
     Route: 042
     Dates: start: 201610, end: 201711
  23. ZOLEDRONIC ACID [Concomitant]
     Active Substance: ZOLEDRONIC ACID
     Route: 065
     Dates: start: 201604, end: 201609
  24. HERCEPTIN [Suspect]
     Active Substance: TRASTUZUMAB
     Route: 042
     Dates: start: 20160801
  25. XELODA [Suspect]
     Active Substance: CAPECITABINE
     Indication: HER-2 POSITIVE BREAST CANCER
     Dosage: FROM DAY 1 TO DAY 14 OF EACH 3 WEEKLY CYCLE
     Route: 048
     Dates: start: 201610, end: 201711
  26. CARBOPLATIN. [Concomitant]
     Active Substance: CARBOPLATIN
     Route: 065
     Dates: end: 20160606
  27. EXEMESTANE. [Concomitant]
     Active Substance: EXEMESTANE
     Indication: HER-2 POSITIVE BREAST CANCER
     Dosage: FROM DAY 1 TO DAY 14,
     Route: 048
     Dates: start: 201711

REACTIONS (5)
  - Bone marrow failure [Unknown]
  - Nausea [Unknown]
  - Decreased appetite [Unknown]
  - Platelet count decreased [Unknown]
  - White blood cell count decreased [Unknown]
